FAERS Safety Report 13417658 (Version 1)
Quarter: 2017Q2

REPORT INFORMATION
  Report Type: Report from Study
  Country: US (occurrence: US)
  Receive Date: 20170407
  Receipt Date: 20170407
  Transmission Date: 20170830
  Serious: Yes (Other)
  Sender: FDA-Public Use
  Company Number: US-GILEAD-2017-0265763

PATIENT
  Age: 58 Year
  Sex: Female

DRUGS (1)
  1. LEDIPASVIR/SOFOSBUVIR [Suspect]
     Active Substance: LEDIPASVIR\SOFOSBUVIR
     Indication: CHRONIC HEPATITIS C
     Dosage: 1 DF, QD
     Route: 048
     Dates: start: 20160101, end: 20160325

REACTIONS (10)
  - Rash [Unknown]
  - Hepatic pain [Unknown]
  - Fatigue [Not Recovered/Not Resolved]
  - Headache [Unknown]
  - Skin papilloma [Unknown]
  - Malaise [Unknown]
  - Fungal infection [Unknown]
  - Immune system disorder [Unknown]
  - Hepatic fibrosis [Unknown]
  - Migraine [Unknown]
